FAERS Safety Report 9711275 (Version 1)
Quarter: 2013Q4

REPORT INFORMATION
  Report Type: Spontaneous
  Country: US (occurrence: US)
  Receive Date: 20131126
  Receipt Date: 20131126
  Transmission Date: 20140711
  Serious: Yes (Other)
  Sender: FDA-Public Use
  Company Number: US-BRISTOL-MYERS SQUIBB COMPANY-19056191

PATIENT
  Age: 66 Year
  Sex: Female
  Weight: 102.04 kg

DRUGS (3)
  1. BYDUREON [Suspect]
     Dosage: NO OF INJECTIONS:12
  2. HUMALOG [Suspect]
     Dosage: REDUCED TO 25UNITS
  3. LANTUS [Suspect]
     Dosage: DOSE REDUCED TO 90UNITS,THEN 80 UNITS

REACTIONS (3)
  - Hypoglycaemia [Recovering/Resolving]
  - Injection site nodule [Not Recovered/Not Resolved]
  - Injection site pain [Unknown]
